FAERS Safety Report 19565782 (Version 2)
Quarter: 2021Q3

REPORT INFORMATION
  Report Type: Spontaneous
  Country: JP (occurrence: JP)
  Receive Date: 20210716
  Receipt Date: 20210804
  Transmission Date: 20211014
  Serious: Yes (Hospitalization)
  Sender: FDA-Public Use
  Company Number: JP-GLAXOSMITHKLINE-JP2021JPN151151

PATIENT
  Age: 8 Decade
  Sex: Female
  Weight: 49 kg

DRUGS (9)
  1. SERETIDE [Suspect]
     Active Substance: FLUTICASONE PROPIONATE\SALMETEROL XINAFOATE
     Indication: ASTHMA
     Dosage: 250 UG, BID
     Route: 055
     Dates: start: 202101
  2. SERETIDE [Suspect]
     Active Substance: FLUTICASONE PROPIONATE\SALMETEROL XINAFOATE
     Dosage: 250 UG, BID
     Route: 055
  3. MONTELUKAST SODIUM. [Concomitant]
     Active Substance: MONTELUKAST SODIUM
     Dosage: UNK
  4. FLUOROMETHOLONE OPHTHALMIC SUSPENSION [Concomitant]
     Dosage: UNK
  5. DESALEX [Concomitant]
     Active Substance: DESLORATADINE
     Dosage: UNK
  6. MINODRONIC ACID [Concomitant]
     Active Substance: MINODRONIC ACID
     Dosage: UNK
  7. LORAZEPAM. [Concomitant]
     Active Substance: LORAZEPAM
     Dosage: UNK
  8. KARY UNI OPHTHALMIC SUSPENSION [Concomitant]
     Dosage: UNK
  9. MUCOSAL [Concomitant]
     Dosage: UNK

REACTIONS (4)
  - Ovarian cyst [Unknown]
  - Sputum retention [Unknown]
  - Dysphonia [Unknown]
  - Therapy cessation [Unknown]
